FAERS Safety Report 13385916 (Version 1)
Quarter: 2017Q1

REPORT INFORMATION
  Report Type: Spontaneous
  Country: US (occurrence: US)
  Receive Date: 20170330
  Receipt Date: 20170330
  Transmission Date: 20170429
  Serious: Yes (Other)
  Sender: FDA-Public Use
  Company Number: PHEH2017US008663

PATIENT
  Age: 58 Year
  Sex: Male

DRUGS (1)
  1. AFINITOR [Suspect]
     Active Substance: EVEROLIMUS
     Indication: CARCINOID SYNDROME
     Dosage: UNK
     Route: 048
     Dates: end: 20170217

REACTIONS (2)
  - Malignant neoplasm progression [Unknown]
  - Carcinoid syndrome [Unknown]

NARRATIVE: CASE EVENT DATE: 20170217
